FAERS Safety Report 8313401 (Version 3)
Quarter: 2013Q2

REPORT INFORMATION
  Report Type: Spontaneous
  Country: JP (occurrence: JP)
  Receive Date: 20111228
  Receipt Date: 20130416
  Transmission Date: 20140414
  Serious: Yes (Hospitalization, Other)
  Sender: FDA-Public Use
  Company Number: PHHY2011JP110388

PATIENT
  Age: 72 Year
  Sex: Male

DRUGS (3)
  1. TASIGNA [Suspect]
     Indication: CHRONIC MYELOID LEUKAEMIA
     Dosage: 800 MG, DAILY
     Route: 048
     Dates: start: 20110401
  2. LYRICA [Concomitant]
     Route: 048
  3. BAYASPIRIN [Concomitant]
     Route: 048

REACTIONS (5)
  - Sensation of heaviness [Unknown]
  - Pain in extremity [Unknown]
  - Myocardial infarction [Recovered/Resolved]
  - Angina pectoris [Unknown]
  - Dizziness [Not Recovered/Not Resolved]
